FAERS Safety Report 18663786 (Version 1)
Quarter: 2020Q4

REPORT INFORMATION
  Report Type: Spontaneous
  Country: IT (occurrence: IT)
  Receive Date: 20201224
  Receipt Date: 20201224
  Transmission Date: 20210114
  Serious: Yes (Life-Threatening, Hospitalization, Other)
  Sender: FDA-Public Use
  Company Number: IT-AUROBINDO-AUR-APL-2020-062490

PATIENT
  Age: 22 Year
  Sex: Female
  Weight: 68 kg

DRUGS (1)
  1. PARACETAMOL TABLET [Suspect]
     Active Substance: ACETAMINOPHEN
     Indication: PRODUCT USED FOR UNKNOWN INDICATION
     Dosage: 13.5 GRAM (1 TOTAL)
     Route: 048
     Dates: start: 20201206, end: 20201206

REACTIONS (4)
  - Suicide attempt [Recovering/Resolving]
  - Hepatitis [Recovering/Resolving]
  - Abdominal pain upper [Recovering/Resolving]
  - Intentional overdose [Recovering/Resolving]

NARRATIVE: CASE EVENT DATE: 20201206
